FAERS Safety Report 6670581-6 (Version None)
Quarter: 2010Q2

REPORT INFORMATION
  Report Type: 
  Country: None (occurrence: None)
  Receive Date: 20100407
  Receipt Date: 20100330
  Transmission Date: 20101027
  Serious: Yes (Hospitalization)
  Sender: FDA-Public Use
  Company Number: DE-BRACCO-000581

PATIENT
  Age: 60 Year
  Sex: Female

DRUGS (1)
  1. SOLUTRAST [Suspect]
     Indication: SPINAL MYELOGRAM
     Dosage: 14-15ML
     Route: 037
     Dates: start: 20100310, end: 20100310

REACTIONS (3)
  - HEARING IMPAIRED [None]
  - NAUSEA [None]
  - VOMITING [None]
